FAERS Safety Report 9272986 (Version 1)
Quarter: 2013Q2

REPORT INFORMATION
  Report Type: Spontaneous
  Country: US (occurrence: US)
  Receive Date: 20130506
  Receipt Date: 20130506
  Transmission Date: 20140414
  Serious: No
  Sender: FDA-Public Use
  Company Number: US-BAYER-2013-056607

PATIENT
  Age: 30 Year
  Sex: Female
  Weight: 88.44 kg

DRUGS (1)
  1. ALEVE TABLET [Suspect]
     Dosage: 2 DF, QD
     Route: 048
     Dates: end: 201304

REACTIONS (1)
  - Drug ineffective [None]
